FAERS Safety Report 22183129 (Version 1)
Quarter: 2023Q2

REPORT INFORMATION
  Report Type: Spontaneous
  Country: US (occurrence: US)
  Receive Date: 20230406
  Receipt Date: 20230406
  Transmission Date: 20230721
  Serious: No
  Sender: FDA-Public Use
  Company Number: US-Evolus, Inc.-2022EV000375

PATIENT
  Age: 55 Year
  Sex: Female

DRUGS (2)
  1. JEUVEAU [Suspect]
     Active Substance: PRABOTULINUMTOXINA-XVFS
     Indication: Skin wrinkling
     Dosage: GLABELLA 20 UNITS (3 INJECTION POINTS- PROCERUS 6 UNITS, 1 INJECTION POINT FOR BOTH MEDIAL CORRUGATO
     Dates: start: 20221130, end: 20221130
  2. JEUVEAU [Suspect]
     Active Substance: PRABOTULINUMTOXINA-XVFS
     Indication: Product used for unknown indication

REACTIONS (2)
  - Off label use [Unknown]
  - Brow ptosis [Unknown]

NARRATIVE: CASE EVENT DATE: 20221130
